FAERS Safety Report 25664827 (Version 1)
Quarter: 2025Q3

REPORT INFORMATION
  Report Type: Spontaneous
  Country: US (occurrence: None)
  Receive Date: 20250808
  Receipt Date: 20250808
  Transmission Date: 20251021
  Serious: Yes (Other)
  Sender: FDA-CTU
  Company Number: None

PATIENT
  Age: 72 Year
  Sex: Female

DRUGS (1)
  1. OTEZLA [Suspect]
     Active Substance: APREMILAST
     Indication: Product used for unknown indication
     Dosage: FREQUENCY : TWICE A DAY;?

REACTIONS (4)
  - Gastrointestinal disorder [None]
  - Dyspepsia [None]
  - Vomiting [None]
  - Weight decreased [None]
